FAERS Safety Report 16982565 (Version 6)
Quarter: 2021Q2

REPORT INFORMATION
  Report Type: Report from Study
  Country: None (occurrence: CO)
  Receive Date: 20191101
  Receipt Date: 20210429
  Transmission Date: 20210716
  Serious: Yes (Disabling, Other)
  Sender: FDA-Public Use
  Company Number: CO-ABBVIE-19K-036-2984917-00

PATIENT
  Sex: Male

DRUGS (2)
  1. HUMIRA [Suspect]
     Active Substance: ADALIMUMAB
     Indication: RHEUMATOID ARTHRITIS
     Route: 058
     Dates: start: 20120213
  2. HUMIRA [Suspect]
     Active Substance: ADALIMUMAB
     Indication: RHEUMATOID ARTHRITIS
     Route: 058

REACTIONS (8)
  - Eye disorder [Recovering/Resolving]
  - Visual impairment [Unknown]
  - Retinal detachment [Recovering/Resolving]
  - Blindness [Not Recovered/Not Resolved]
  - Drug ineffective [Unknown]
  - Blindness unilateral [Recovering/Resolving]
  - Toe operation [Unknown]
  - Eye contusion [Unknown]

NARRATIVE: CASE EVENT DATE: 2015
